FAERS Safety Report 14805588 (Version 1)
Quarter: 2018Q2

REPORT INFORMATION
  Report Type: Spontaneous
  Country: CN (occurrence: CN)
  Receive Date: 20180425
  Receipt Date: 20180425
  Transmission Date: 20180711
  Serious: Yes (Death, Hospitalization)
  Sender: FDA-Public Use
  Company Number: CN-SA-2018SA109668

PATIENT
  Age: 30 Year
  Sex: Male

DRUGS (4)
  1. RIFAMPICIN [Suspect]
     Active Substance: RIFAMPIN
     Indication: LYMPH NODE TUBERCULOSIS
     Route: 065
  2. ETHAMBUTOL [Suspect]
     Active Substance: ETHAMBUTOL HYDROCHLORIDE
     Indication: LYMPH NODE TUBERCULOSIS
     Route: 065
  3. ISONIAZID. [Suspect]
     Active Substance: ISONIAZID
     Indication: LYMPH NODE TUBERCULOSIS
     Route: 065
  4. PYRAZINAMIDE. [Suspect]
     Active Substance: PYRAZINAMIDE
     Indication: LYMPH NODE TUBERCULOSIS
     Route: 065

REACTIONS (18)
  - Hemiparesis [Fatal]
  - CSF protein increased [Fatal]
  - Cerebral infarction [Fatal]
  - CSF glucose decreased [Fatal]
  - Ocular discomfort [Fatal]
  - Coma [Fatal]
  - Muscle spasms [Fatal]
  - CSF white blood cell count increased [Fatal]
  - Encephalitis [Fatal]
  - Tuberculosis [Fatal]
  - Dizziness [Fatal]
  - Multiple organ dysfunction syndrome [Fatal]
  - Headache [Fatal]
  - Vitreous haemorrhage [Fatal]
  - Central nervous system lesion [Fatal]
  - CSF lactate dehydrogenase increased [Fatal]
  - Chorioretinitis [Fatal]
  - Intentional product use issue [Unknown]
